FAERS Safety Report 6810081-3 (Version None)
Quarter: 2010Q2

REPORT INFORMATION
  Report Type: 
  Country: None (occurrence: None)
  Receive Date: 20100630
  Receipt Date: 20100624
  Transmission Date: 20101027
  Serious: Yes (Death)
  Sender: FDA-Public Use
  Company Number: CO-ROCHE-711281

PATIENT
  Sex: Male

DRUGS (2)
  1. AVASTIN [Suspect]
     Indication: COLORECTAL CANCER
     Route: 042
     Dates: start: 20090710, end: 20100526
  2. XELODA [Suspect]
     Indication: COLORECTAL CANCER
     Dosage: FREQUENCY REPORTED AS EVERY DAY
     Route: 048
     Dates: start: 20090825, end: 20100602

REACTIONS (1)
  - CARDIOPULMONARY FAILURE [None]
